FAERS Safety Report 8240317-6 (Version None)
Quarter: 2012Q1

REPORT INFORMATION
  Report Type: 
  Country: None (occurrence: None)
  Receive Date: 20120328
  Receipt Date: 20120328
  Transmission Date: 20120608
  Serious: Yes (Hospitalization, Other)
  Sender: FDA-Public Use
  Company Number: None

PATIENT
  Age: 85 Year
  Sex: Female
  Weight: 72.574 kg

DRUGS (1)
  1. PROLIA [Suspect]
     Indication: OSTEOPOROSIS PROPHYLAXIS
     Dosage: 60 MG/ML
     Route: 058
     Dates: start: 20110908, end: 20110908

REACTIONS (14)
  - MYALGIA [None]
  - BALANCE DISORDER [None]
  - DYSURIA [None]
  - RASH [None]
  - PARAESTHESIA [None]
  - MUSCULOSKELETAL PAIN [None]
  - CHILLS [None]
  - ASTHENIA [None]
  - PRURITUS [None]
  - EAR INFECTION [None]
  - MUSCLE SPASMS [None]
  - ABDOMINAL PAIN [None]
  - FATIGUE [None]
  - HYPOAESTHESIA [None]
